FAERS Safety Report 6282857-5 (Version None)
Quarter: 2009Q3

REPORT INFORMATION
  Report Type: 
  Country: None (occurrence: None)
  Receive Date: 20090724
  Receipt Date: 20090717
  Transmission Date: 20100115
  Serious: Yes (Other)
  Sender: FDA-Public Use
  Company Number: US-GENENTECH-286483

PATIENT
  Sex: Female
  Weight: 22.2 kg

DRUGS (12)
  1. XOLAIR [Suspect]
     Indication: ASTHMA
     Dosage: 375 MG, Q2W
     Route: 058
     Dates: start: 20090311, end: 20090626
  2. PULMOZYME [Concomitant]
     Indication: DRUG USE FOR UNKNOWN INDICATION
  3. PREDNISONE TAB [Concomitant]
     Indication: ASPERGILLOSIS
  4. FLONASE [Concomitant]
     Indication: DRUG USE FOR UNKNOWN INDICATION
  5. LANTUS [Concomitant]
     Indication: DRUG USE FOR UNKNOWN INDICATION
  6. NOVOLOG [Concomitant]
     Indication: DRUG USE FOR UNKNOWN INDICATION
  7. ITRACONAZOLE [Concomitant]
     Indication: DRUG USE FOR UNKNOWN INDICATION
  8. VITAMIN ADEK [Concomitant]
     Indication: DRUG USE FOR UNKNOWN INDICATION
  9. PREVACID [Concomitant]
     Indication: DRUG USE FOR UNKNOWN INDICATION
  10. ADVAIR HFA [Concomitant]
     Indication: DRUG USE FOR UNKNOWN INDICATION
  11. PANCRECARB [Concomitant]
     Indication: DRUG USE FOR UNKNOWN INDICATION
  12. ALBUTEROL [Concomitant]
     Indication: DRUG USE FOR UNKNOWN INDICATION

REACTIONS (2)
  - FLUSHING [None]
  - URTICARIA [None]
